FAERS Safety Report 18233235 (Version 1)
Quarter: 2020Q3

REPORT INFORMATION
  Report Type: Spontaneous
  Country: US (occurrence: US)
  Receive Date: 20200904
  Receipt Date: 20200904
  Transmission Date: 20201103
  Serious: No
  Sender: FDA-Public Use
  Company Number: US-OSMOTICA_PHARMACEUTICAL_US_LLC-POI0573202000370

PATIENT
  Age: 50 Year
  Sex: Male

DRUGS (6)
  1. AMPYRA [Concomitant]
     Active Substance: DALFAMPRIDINE
     Indication: MULTIPLE SCLEROSIS
  2. OSMOLEX ER [Suspect]
     Active Substance: AMANTADINE
     Dates: start: 20200514, end: 20200522
  3. CALCIPOTRIENE/BETAMET HASONE DIPROPRIONATE OINMENT [Concomitant]
     Indication: PSORIASIS
     Route: 061
  4. EDARBI [Concomitant]
     Active Substance: AZILSARTAN KAMEDOXOMIL
     Indication: HYPERTENSION
  5. OSMOLEX ER [Suspect]
     Active Substance: AMANTADINE
     Indication: FATIGUE
     Dates: start: 20200507, end: 20200513
  6. OSMOLEX ER [Suspect]
     Active Substance: AMANTADINE
     Dates: start: 20200523, end: 20200529

REACTIONS (3)
  - Insomnia [Recovered/Resolved]
  - Urinary retention [Recovered/Resolved]
  - Off label use [Recovered/Resolved]

NARRATIVE: CASE EVENT DATE: 20200507
